FAERS Safety Report 9440311 (Version 1)
Quarter: 2013Q3

REPORT INFORMATION
  Report Type: Spontaneous
  Country: US (occurrence: US)
  Receive Date: 20130805
  Receipt Date: 20130805
  Transmission Date: 20140515
  Serious: Yes (Other)
  Sender: FDA-Public Use
  Company Number: US-RB-056630-13

PATIENT
  Age: 69 Year
  Sex: Male

DRUGS (2)
  1. MUCINEX [Suspect]
     Indication: PRODUCT USED FOR UNKNOWN INDICATION
     Dosage: LAST TOOK DRUG ON 24-JUL-2013
     Route: 048
     Dates: start: 20130723
  2. CODEINE [Suspect]
     Indication: PRODUCT USED FOR UNKNOWN INDICATION
     Dosage: TAKING FOR ABOUT 7 DAYS

REACTIONS (1)
  - Blood pressure increased [Not Recovered/Not Resolved]
